FAERS Safety Report 10475205 (Version 1)
Quarter: 2014Q3

REPORT INFORMATION
  Report Type: Spontaneous
  Country: US (occurrence: None)
  Receive Date: 20140924
  Receipt Date: 20140924
  Transmission Date: 20150326
  Serious: Yes (Disabling)
  Sender: FDA-Public Use
  Company Number: None

PATIENT
  Age: 3 Year
  Sex: Female
  Weight: 13.61 kg

DRUGS (2)
  1. MIRALAX [Suspect]
     Active Substance: POLYETHYLENE GLYCOL 3350
     Indication: CONSTIPATION
     Dosage: 1 1/2 TEASPOON ONCE DAILY TAKEN BY MOUTH
     Route: 048
     Dates: start: 20080830, end: 20131015
  2. MIRALAX [Suspect]
     Active Substance: POLYETHYLENE GLYCOL 3350
     Indication: FAECALOMA
     Dosage: 1 1/2 TEASPOON ONCE DAILY TAKEN BY MOUTH
     Route: 048
     Dates: start: 20080830, end: 20131015

REACTIONS (11)
  - Irritability [None]
  - Aggression [None]
  - Drug ineffective [None]
  - Weight gain poor [None]
  - Nausea [None]
  - Urine output decreased [None]
  - Flatulence [None]
  - Screaming [None]
  - Abdominal pain upper [None]
  - Abdominal distension [None]
  - Anger [None]
